FAERS Safety Report 24428016 (Version 1)
Quarter: 2024Q4

REPORT INFORMATION
  Report Type: Spontaneous
  Country: CA (occurrence: CA)
  Receive Date: 20241011
  Receipt Date: 20241011
  Transmission Date: 20250115
  Serious: Yes (Death, Other)
  Sender: MERCK
  Company Number: CA-009507513-2410CAN003640

PATIENT
  Age: 57 Year
  Sex: Female

DRUGS (9)
  1. KEYTRUDA [Suspect]
     Active Substance: PEMBROLIZUMAB
  2. CARBOPLATIN [Concomitant]
     Active Substance: CARBOPLATIN
     Dosage: FORMULATION: INTRAVENOUS SOLUTION
  3. DOCETAXEL [Concomitant]
     Active Substance: DOCETAXEL
     Route: 065
  4. HYDROMORPHONE [Concomitant]
     Active Substance: HYDROMORPHONE
  5. JARDIANCE [Concomitant]
     Active Substance: EMPAGLIFLOZIN
  6. PEGFILGRASTIM [Concomitant]
     Active Substance: PEGFILGRASTIM
     Dosage: FORMULATION: SUBCUTANEOUS SOLUTION
  7. NOVORAPID [Concomitant]
     Active Substance: INSULIN ASPART
     Dosage: FORMULATION: SUBCUTANEOUS SOLUTION
  8. PIPERACILLIN SODIUM\TAZOBACTAM SODIUM [Concomitant]
     Active Substance: PIPERACILLIN SODIUM\TAZOBACTAM SODIUM
  9. VANCOMYCIN [Concomitant]
     Active Substance: VANCOMYCIN

REACTIONS (4)
  - Cellulitis [Fatal]
  - Liver injury [Fatal]
  - Pseudomonas test positive [Fatal]
  - Rash [Fatal]
